FAERS Safety Report 14235560 (Version 3)
Quarter: 2020Q1

REPORT INFORMATION
  Report Type: Spontaneous
  Country: IN (occurrence: IN)
  Receive Date: 20171129
  Receipt Date: 20200320
  Transmission Date: 20200409
  Serious: Yes (Other)
  Sender: FDA-Public Use
  Company Number: IN-AUROBINDO-AUR-APL-2017-43833

PATIENT
  Age: 38 Year
  Sex: Male

DRUGS (5)
  1. EFAVIRENZ. [Suspect]
     Active Substance: EFAVIRENZ
     Indication: HIV INFECTION
     Dosage: 600 MG, UNK
     Route: 065
  2. COTRIMOXAZOLE [Suspect]
     Active Substance: SULFAMETHOXAZOLE\TRIMETHOPRIM
     Indication: HIV INFECTION
     Dosage: 160/800 MG, DAILY
     Route: 065
  3. IMMUNOGLOBULIN I.V [Suspect]
     Active Substance: HUMAN IMMUNOGLOBULIN G
     Indication: HIV INFECTION
     Dosage: 2 G/KG BODY WEIGHT OVER 5 DAYS
     Route: 042
  4. LAMIVUDINE. [Suspect]
     Active Substance: LAMIVUDINE
     Indication: HIV INFECTION
     Dosage: 300 MG, UNK
     Route: 065
  5. TENOFOVIR [Suspect]
     Active Substance: TENOFOVIR
     Indication: HIV INFECTION
     Dosage: 300 MG, UNK
     Route: 065

REACTIONS (8)
  - Bulbar palsy [Recovered/Resolved]
  - Immune reconstitution inflammatory syndrome [Unknown]
  - Guillain-Barre syndrome [Unknown]
  - Rash [Unknown]
  - Rash papular [Unknown]
  - Muscular weakness [Recovered/Resolved]
  - Condition aggravated [Unknown]
  - Acarodermatitis [Recovered/Resolved]
